FAERS Safety Report 22595808 (Version 1)
Quarter: 2023Q2

REPORT INFORMATION
  Report Type: Spontaneous
  Country: US (occurrence: US)
  Receive Date: 20230613
  Receipt Date: 20230613
  Transmission Date: 20230722
  Serious: No
  Sender: FDA-Public Use
  Company Number: US-TEVA-2023-US-2892278

PATIENT
  Age: 47 Year
  Sex: Female

DRUGS (4)
  1. PROGESTERONE [Suspect]
     Active Substance: PROGESTERONE
     Indication: Menopause
     Route: 048
  2. GABAPENTIN [Suspect]
     Active Substance: GABAPENTIN
     Indication: Product used for unknown indication
     Dosage: LAST DOSE 23-MAY-2023
     Route: 065
  3. PAROXETINE [Suspect]
     Active Substance: PAROXETINE
     Indication: Product used for unknown indication
     Dosage: LAST DOSE 23-MAY-2023
     Route: 065
  4. ESTRADIOL [Suspect]
     Active Substance: ESTRADIOL
     Indication: Menopause
     Route: 062
     Dates: start: 20230512

REACTIONS (2)
  - Hot flush [Unknown]
  - Diarrhoea [Unknown]
